FAERS Safety Report 5322060-6 (Version None)
Quarter: 2007Q2

REPORT INFORMATION
  Report Type: 
  Country: None (occurrence: None)
  Receive Date: 20070511
  Receipt Date: 20070501
  Transmission Date: 20071010
  Serious: Yes (Death)
  Sender: FDA-Public Use
  Company Number: US-JNJFOC-20060902454

PATIENT
  Age: 35 Year
  Sex: Female

DRUGS (1)
  1. ASPIRIN [Suspect]
     Indication: INTENTIONAL DRUG MISUSE
     Route: 048

REACTIONS (4)
  - ATRIOVENTRICULAR BLOCK [None]
  - DELIRIUM [None]
  - INTENTIONAL OVERDOSE [None]
  - PULMONARY OEDEMA [None]
